FAERS Safety Report 8983857 (Version 1)
Quarter: 2012Q4

REPORT INFORMATION
  Report Type: Report from Study
  Country: CZ (occurrence: CZ)
  Receive Date: 20121224
  Receipt Date: 20121224
  Transmission Date: 20130627
  Serious: Yes (Other)
  Sender: FDA-Public Use
  Company Number: CZ-ROCHE-1170929

PATIENT
  Age: 42 Year
  Sex: Female

DRUGS (2)
  1. TRASTUZUMAB [Suspect]
     Indication: BREAST CANCER
     Route: 042
     Dates: start: 20120919
  2. DOCETAXEL [Concomitant]
     Indication: BREAST CANCER

REACTIONS (1)
  - Nephrotic syndrome [Recovered/Resolved]
